FAERS Safety Report 15587464 (Version 2)
Quarter: 2018Q4

REPORT INFORMATION
  Report Type: Spontaneous
  Country: US (occurrence: US)
  Receive Date: 20181105
  Receipt Date: 20181113
  Transmission Date: 20190205
  Serious: Yes (Other)
  Sender: FDA-Public Use
  Company Number: US-UNITED THERAPEUTICS-UNT-2018-017684

PATIENT
  Sex: Male
  Weight: 111.11 kg

DRUGS (2)
  1. REMODULIN [Suspect]
     Active Substance: TREPROSTINIL
     Indication: PULMONARY ARTERIAL HYPERTENSION
     Dosage: 0.022 ?G/KG, CONTINUING
     Route: 041
     Dates: start: 20180720
  2. ELIQUIS [Concomitant]
     Active Substance: APIXABAN
     Indication: PRODUCT USED FOR UNKNOWN INDICATION
     Route: 065

REACTIONS (7)
  - Therapy non-responder [Unknown]
  - Neuropathy peripheral [Unknown]
  - Anxiety [Unknown]
  - Diarrhoea [Unknown]
  - Anal incontinence [Unknown]
  - Pulmonary hypertension [Unknown]
  - Depression [Unknown]

NARRATIVE: CASE EVENT DATE: 2018
